FAERS Safety Report 18086932 (Version 1)
Quarter: 2020Q3

REPORT INFORMATION
  Report Type: Spontaneous
  Country: US (occurrence: US)
  Receive Date: 20200728
  Receipt Date: 20200728
  Transmission Date: 20201103
  Serious: Yes (Hospitalization)
  Sender: FDA-Public Use
  Company Number: None

PATIENT
  Sex: Male

DRUGS (15)
  1. ALBUTEROL. [Concomitant]
     Active Substance: ALBUTEROL
  2. TERBINAFINE. [Concomitant]
     Active Substance: TERBINAFINE
  3. COREG [Concomitant]
     Active Substance: CARVEDILOL
  4. PREDNISONE. [Concomitant]
     Active Substance: PREDNISONE
  5. BENZONATATE. [Concomitant]
     Active Substance: BENZONATATE
  6. VIOS [Concomitant]
  7. ENTRESTO [Concomitant]
     Active Substance: SACUBITRIL\VALSARTAN
  8. SMZ/TMP [Concomitant]
     Active Substance: SULFAMETHOXAZOLE\TRIMETHOPRIM
  9. METHOTREXATE. [Concomitant]
     Active Substance: METHOTREXATE
  10. DICLOFENAC [Concomitant]
     Active Substance: DICLOFENAC
  11. HYDROCHLOROT [Concomitant]
     Active Substance: HYDROCHLOROTHIAZIDE
  12. SILVER SULFA [Concomitant]
  13. XELJANZ XR [Suspect]
     Active Substance: TOFACITINIB CITRATE
     Indication: DERMATITIS ATOPIC
     Route: 048
     Dates: start: 201907
  14. HUMIRA [Concomitant]
     Active Substance: ADALIMUMAB
  15. LEVOFLOXACIN. [Concomitant]
     Active Substance: LEVOFLOXACIN

REACTIONS (1)
  - Pneumonia [None]
